FAERS Safety Report 4559371-8 (Version None)
Quarter: 2005Q1

REPORT INFORMATION
  Report Type: 
  Country: None (occurrence: None)
  Receive Date: 20050124
  Receipt Date: 20050114
  Transmission Date: 20050727
  Serious: Yes (Other)
  Sender: FDA-Public Use
  Company Number: US-GLAXOSMITHKLINE-A0540737A

PATIENT
  Age: 63 Year
  Sex: Female
  Weight: 54.5 kg

DRUGS (7)
  1. NICODERM CQ [Suspect]
     Dosage: 21MG PER DAY
     Route: 062
     Dates: start: 20050110, end: 20050112
  2. LIPITOR [Concomitant]
  3. TRAVATAN [Concomitant]
     Indication: GLAUCOMA
     Route: 047
  4. FOSAMAX [Concomitant]
     Indication: OSTEOPOROSIS
  5. PREMARIN [Concomitant]
     Dates: end: 20050111
  6. ONE-A-DAY VITAMINS [Concomitant]
  7. CORAL CALCIUM [Concomitant]

REACTIONS (5)
  - APPLICATION SITE DERMATITIS [None]
  - APPLICATION SITE ERYTHEMA [None]
  - APPLICATION SITE IRRITATION [None]
  - HYPERSENSITIVITY [None]
  - LUNG NEOPLASM MALIGNANT [None]
